FAERS Safety Report 23329718 (Version 2)
Quarter: 2024Q1

REPORT INFORMATION
  Report Type: Spontaneous
  Country: US (occurrence: US)
  Receive Date: 20231222
  Receipt Date: 20240125
  Transmission Date: 20240410
  Serious: No
  Sender: FDA-Public Use
  Company Number: US-Blueprint Medicines Corporation-1849

PATIENT
  Sex: Female

DRUGS (1)
  1. AYVAKIT [Suspect]
     Active Substance: AVAPRITINIB
     Indication: Haematopoietic neoplasm
     Route: 065
     Dates: start: 20231206

REACTIONS (8)
  - Eye oedema [Unknown]
  - Swelling of eyelid [Unknown]
  - Periorbital swelling [Unknown]
  - Lacrimation increased [Unknown]
  - Urticaria [Recovering/Resolving]
  - Paraesthesia [Recovered/Resolved]
  - Anxiety [Recovering/Resolving]
  - Periorbital oedema [Unknown]
